FAERS Safety Report 17240245 (Version 1)
Quarter: 2020Q1

REPORT INFORMATION
  Report Type: Spontaneous
  Country: US (occurrence: US)
  Receive Date: 20200107
  Receipt Date: 20200107
  Transmission Date: 20200409
  Serious: Yes (Other)
  Sender: FDA-Public Use
  Company Number: US-CIPLA LTD.-2019US08474

PATIENT

DRUGS (1)
  1. ISOPROTERENOL. [Suspect]
     Active Substance: ISOPROTERENOL
     Indication: NODAL RHYTHM
     Dosage: UNK

REACTIONS (6)
  - Bradycardia [Unknown]
  - Vomiting [Unknown]
  - Vasodilatation [Unknown]
  - Ventricular dyssynchrony [Unknown]
  - Cardiac output decreased [Unknown]
  - Drug intolerance [Unknown]
